FAERS Safety Report 14769712 (Version 1)
Quarter: 2018Q2

REPORT INFORMATION
  Report Type: Spontaneous
  Country: US (occurrence: US)
  Receive Date: 20180411
  Receipt Date: 20180411
  Transmission Date: 20180711
  Serious: No
  Sender: FDA-Public Use
  Company Number: None

PATIENT
  Sex: Female

DRUGS (11)
  1. OXYCODONE [Concomitant]
     Active Substance: OXYCODONE
  2. WARFARIN [Concomitant]
     Active Substance: WARFARIN
  3. MORPHINE SULF [Concomitant]
     Active Substance: MORPHINE SULFATE
  4. TOPIRAMATE. [Concomitant]
     Active Substance: TOPIRAMATE
  5. LINZESS [Concomitant]
     Active Substance: LINACLOTIDE
  6. HUMIRA [Suspect]
     Active Substance: ADALIMUMAB
     Indication: PRODUCT USED FOR UNKNOWN INDICATION
     Dosage: ?          OTHER FREQUENCY:Q 14 D;?
     Route: 058
     Dates: start: 20180112
  7. ESOMEPRAZOLE [Concomitant]
     Active Substance: ESOMEPRAZOLE
  8. CEVIME [Concomitant]
  9. TRAZODONE [Concomitant]
     Active Substance: TRAZODONE HYDROCHLORIDE
  10. RESTORA [Concomitant]
  11. GABAPENTIN. [Concomitant]
     Active Substance: GABAPENTIN

REACTIONS (1)
  - Condition aggravated [None]
